FAERS Safety Report 18809879 (Version 1)
Quarter: 2021Q1

REPORT INFORMATION
  Report Type: Spontaneous
  Country: FR (occurrence: FR)
  Receive Date: 20210129
  Receipt Date: 20210129
  Transmission Date: 20210419
  Serious: Yes (Other)
  Sender: FDA-Public Use
  Company Number: FR-ALXN-A202101147

PATIENT
  Age: 1 Year
  Sex: Female
  Weight: 10 kg

DRUGS (4)
  1. SOLU?MEDROL [Suspect]
     Active Substance: METHYLPREDNISOLONE SODIUM SUCCINATE
     Indication: SYSTEMIC IMMUNE ACTIVATION
     Dosage: 90 MG, SINGLE
     Route: 040
     Dates: start: 20201027, end: 20201029
  2. SOLIRIS [Suspect]
     Active Substance: ECULIZUMAB
     Indication: MICROANGIOPATHY
     Dosage: 300 MG, SINGLE (1 TOTAL)
     Route: 041
     Dates: start: 20201029, end: 20201029
  3. SOLIRIS [Suspect]
     Active Substance: ECULIZUMAB
     Indication: OFF LABEL USE
  4. CAPLACIZUMAB [Suspect]
     Active Substance: CAPLACIZUMAB
     Indication: THROMBOCYTOPENIC PURPURA
     Dosage: 2 MG, QD
     Route: 058
     Dates: start: 20201029

REACTIONS (3)
  - Haematemesis [Recovered/Resolved]
  - Off label use [Unknown]
  - Abdominal distension [Recovered/Resolved]

NARRATIVE: CASE EVENT DATE: 20201030
